FAERS Safety Report 7600084-3 (Version None)
Quarter: 2011Q3

REPORT INFORMATION
  Report Type: 
  Country: None (occurrence: None)
  Receive Date: 20110706
  Receipt Date: 20110706
  Transmission Date: 20111222
  Serious: Yes (Death, Life-Threatening, Hospitalization)
  Sender: FDA-Public Use
  Company Number: None

PATIENT
  Age: 54 Year
  Sex: Female
  Weight: 70 kg

DRUGS (22)
  1. DULCOLAX PR [Concomitant]
  2. HEPARIN [Concomitant]
  3. DUONAB [Concomitant]
  4. ZANTAC [Concomitant]
  5. ZOCOR [Concomitant]
  6. TIOPRONIN [Suspect]
     Indication: INTRACRANIAL ANEURYSM
     Dosage: 1000 MG, 3 TIMES/DAY; ORAL ADMINISTRATION
     Route: 048
     Dates: start: 20110425, end: 20110502
  7. TIOPRONIN [Suspect]
     Indication: HAEMORRHAGE
     Dosage: 1000 MG, 3 TIMES/DAY; ORAL ADMINISTRATION
     Route: 048
     Dates: start: 20110425, end: 20110502
  8. PROPOFOL INFUSION [Concomitant]
  9. LASIX [Concomitant]
  10. FIORICET [Concomitant]
  11. VANCOMYCIN [Concomitant]
  12. LANTUS [Concomitant]
  13. CEREBYX [Concomitant]
  14. MAGNESIUM SULFATE [Concomitant]
  15. PERIDEX [Concomitant]
  16. TIOPRONIN OR PLACEBO [Concomitant]
  17. MULTI-VITAMIN [Concomitant]
  18. POTASSIUM CHLORIDE [Concomitant]
  19. CEFEPIME [Concomitant]
  20. TOBRAMYCIN [Concomitant]
  21. SENNA [Concomitant]
  22. TYLENOL-500 [Concomitant]

REACTIONS (7)
  - INTRACRANIAL PRESSURE INCREASED [None]
  - GENERAL PHYSICAL HEALTH DETERIORATION [None]
  - POST PROCEDURAL COMPLICATION [None]
  - CEREBRAL INFARCTION [None]
  - CARDIOPULMONARY FAILURE [None]
  - VASOSPASM [None]
  - RESPIRATORY FAILURE [None]
